FAERS Safety Report 7239062-5 (Version None)
Quarter: 2011Q1

REPORT INFORMATION
  Report Type: 
  Country: None (occurrence: None)
  Receive Date: 20110119
  Receipt Date: 20110119
  Transmission Date: 20110831
  Serious: Yes (Hospitalization)
  Sender: FDA-Public Use
  Company Number: None

PATIENT
  Sex: Male
  Weight: 98.7934 kg

DRUGS (2)
  1. LENALIDOMIDE [Suspect]
     Indication: ACUTE MYELOID LEUKAEMIA
     Dosage: 10 MG PO DAILY D1-28
     Route: 048
     Dates: start: 20101213
  2. AZACITIDINE [Suspect]
     Indication: ACUTE MYELOID LEUKAEMIA
     Dosage: 75 MG/M2 D1-D5
     Dates: start: 20101213, end: 20101217

REACTIONS (6)
  - COUGH [None]
  - FATIGUE [None]
  - CYST [None]
  - ANAL ABSCESS [None]
  - DYSPNOEA EXERTIONAL [None]
  - ASTHENIA [None]
